FAERS Safety Report 4788843-6 (Version None)
Quarter: 2005Q4

REPORT INFORMATION
  Report Type: 
  Country: None (occurrence: None)
  Receive Date: 20051005
  Receipt Date: 20050905
  Transmission Date: 20060501
  Serious: Yes (Hospitalization, Other)
  Sender: FDA-Public Use
  Company Number: PHRM2005FR02371

PATIENT
  Age: 84 Year
  Sex: Female

DRUGS (5)
  1. TEGRETOL [Suspect]
     Indication: PARAESTHESIA
     Route: 048
     Dates: end: 20050720
  2. ALDACTAZINE [Suspect]
     Indication: HYPERTENSION
     Dosage: 0.5 TAB/DAY
     Route: 048
     Dates: start: 20050701
  3. TEMESTA [Concomitant]
     Route: 048
     Dates: end: 20050720
  4. SERESTA [Suspect]
     Route: 048
     Dates: start: 20050720, end: 20050723
  5. DI-ANTALVIC [Concomitant]
     Route: 048

REACTIONS (10)
  - CONFUSIONAL STATE [None]
  - CONVULSION [None]
  - DISORIENTATION [None]
  - DRUG INTERACTION [None]
  - FALL [None]
  - HYPERTENSION [None]
  - HYPONATRAEMIA [None]
  - HYPOTENSION [None]
  - INFLAMMATION [None]
  - LEUKOENCEPHALOPATHY [None]
